FAERS Safety Report 10075998 (Version 2)
Quarter: 2014Q2

REPORT INFORMATION
  Report Type: Spontaneous
  Country: CN (occurrence: CN)
  Receive Date: 20140414
  Receipt Date: 20140415
  Transmission Date: 20141212
  Serious: Yes (Other)
  Sender: FDA-Public Use
  Company Number: ALCN2014CN002219

PATIENT
  Age: 53 Year
  Sex: Female

DRUGS (1)
  1. FLUORESCITE [Suspect]
     Indication: ANGIOGRAM
     Dosage: 1 UNK, ONCE/SINGLE
     Route: 042

REACTIONS (8)
  - Anaphylactic shock [Unknown]
  - Heart rate increased [Recovered/Resolved]
  - Hypotension [Recovered/Resolved]
  - Fatigue [Unknown]
  - Hypoaesthesia [Unknown]
  - Pallor [Unknown]
  - Dysphonia [Unknown]
  - Cold sweat [Unknown]
